FAERS Safety Report 5071500-9 (Version None)
Quarter: 2006Q3

REPORT INFORMATION
  Report Type: 
  Country: None (occurrence: None)
  Receive Date: 20060801
  Receipt Date: 20060724
  Transmission Date: 20061208
  Serious: Yes (Hospitalization)
  Sender: FDA-Public Use
  Company Number: 2006BI008179

PATIENT
  Age: 43 Year
  Sex: Female
  Weight: 91.6266 kg

DRUGS (14)
  1. AVONEX [Suspect]
     Indication: MULTIPLE SCLEROSIS
     Dosage: 30 UG;Q5D;IM
     Route: 030
     Dates: start: 19960101
  2. AVONEX [Suspect]
     Indication: MULTIPLE SCLEROSIS
     Dosage: 30 UG;Q5D;IM
     Route: 030
  3. PERCOCET [Concomitant]
  4. PRILOSEC [Concomitant]
  5. NEURONTIN [Concomitant]
  6. ZETIA [Concomitant]
  7. CARAFATE [Concomitant]
  8. NASAL SPRAY [Concomitant]
  9. ZANTAC [Concomitant]
  10. TRAZODONE HCL [Concomitant]
  11. DESIPRAMINE HCL [Concomitant]
  12. EFFEXOR [Concomitant]
  13. AVAPRO [Concomitant]
  14. XANAX [Concomitant]

REACTIONS (9)
  - ANKLE FRACTURE [None]
  - DELIRIUM [None]
  - DEPRESSION [None]
  - DIPLOPIA [None]
  - EYE PAIN [None]
  - FALL [None]
  - MEMORY IMPAIRMENT [None]
  - PROGRESSIVE MULTIPLE SCLEROSIS [None]
  - URINARY TRACT INFECTION [None]
